FAERS Safety Report 18333119 (Version 1)
Quarter: 2020Q4

REPORT INFORMATION
  Report Type: Spontaneous
  Country: DE (occurrence: DE)
  Receive Date: 20201001
  Receipt Date: 20201001
  Transmission Date: 20210113
  Serious: Yes (Hospitalization)
  Sender: FDA-Public Use
  Company Number: DE-TEVA-2020-DE-1832238

PATIENT
  Age: 79 Year
  Sex: Male
  Weight: 75 kg

DRUGS (15)
  1. PHENPROCOUMON [Interacting]
     Active Substance: PHENPROCOUMON
     Dosage: 3 MG, BREAK SINCE 24-JUN-2020
     Route: 048
  2. CYCLOPHOSPHAMID [Concomitant]
     Active Substance: CYCLOPHOSPHAMIDE
     Dosage: NK MG, ACCORDING TO THE SCHEME
  3. AMPHO-MORONAL [Concomitant]
     Active Substance: AMPHOTERICIN B
     Dosage: 4 DOSAGE FORMS DAILY; NK MG, 1-1-1-1,
     Route: 048
  4. RIOPAN GEL [Concomitant]
     Dosage: 1 DOSAGE FORMS DAILY; 0-0-1-0
     Route: 048
  5. ATORVASTATIN [Concomitant]
     Active Substance: ATORVASTATIN
     Dosage: 40 MILLIGRAM DAILY; 0-0-1-0
     Route: 048
  6. COTRIM FORTE [Concomitant]
     Active Substance: SULFAMETHOXAZOLE\TRIMETHOPRIM
     Dosage: 1 DOSAGE FORMS DAILY; 400|80 MG, 1-0-0-0
     Route: 048
  7. PREDNISOLON [Interacting]
     Active Substance: PREDNISOLONE
     Dosage: 10 MILLIGRAM DAILY;  1-0-0-0
     Route: 048
  8. ALFUZOSIN [Concomitant]
     Active Substance: ALFUZOSIN
     Dosage: 10 MILLIGRAM DAILY;  0-1-0-0
     Route: 048
  9. FLUCONAZOLE. [Suspect]
     Active Substance: FLUCONAZOLE
     Indication: OESOPHAGEAL CANDIDIASIS
     Dosage: 200 MILLIGRAM DAILY; 1-0-0-0
     Route: 048
  10. PANTOPRAZOL [Concomitant]
     Active Substance: PANTOPRAZOLE SODIUM
     Dosage: 40 MILLIGRAM DAILY; 1-0-0-0
     Route: 048
  11. COLECALCIFEROL (VITAMIN D) [Concomitant]
     Dosage: 20000 IU / WEEK
     Route: 048
  12. METOPROLOL. [Concomitant]
     Active Substance: METOPROLOL
     Dosage: 47.5 MILLIGRAM DAILY; 1-0-0-0
     Route: 048
  13. CANDESARTAN. [Concomitant]
     Active Substance: CANDESARTAN
     Dosage: 4 MILLIGRAM DAILY; 1-0-0-0
     Route: 048
  14. DARBEPOETIN ALFA [Concomitant]
     Active Substance: DARBEPOETIN ALFA
     Dosage: 40 UG / WEEK
     Route: 058
  15. PROSTAGUTT FORTE [Concomitant]
     Active Substance: HERBALS
     Dosage: 1 DOSAGE FORMS DAILY; 0-0-1-0
     Route: 048

REACTIONS (6)
  - Epistaxis [Recovering/Resolving]
  - International normalised ratio abnormal [Unknown]
  - Labelled drug-drug interaction medication error [Unknown]
  - Anaemia [Recovering/Resolving]
  - Haematoma [Recovering/Resolving]
  - Mucosal haemorrhage [Recovering/Resolving]
